FAERS Safety Report 10347357 (Version 3)
Quarter: 2016Q1

REPORT INFORMATION
  Report Type: Spontaneous
  Country: US (occurrence: US)
  Receive Date: 20140729
  Receipt Date: 20160325
  Transmission Date: 20160525
  Serious: No
  Sender: FDA-Public Use
  Company Number: US-PFIZER INC-2014209101

PATIENT
  Age: 60 Year
  Sex: Male
  Weight: 80.73 kg

DRUGS (22)
  1. LYRICA [Suspect]
     Active Substance: PREGABALIN
     Indication: PAIN
     Dosage: UNK, 2X/DAY
  2. OMEPRAZOLE. [Concomitant]
     Active Substance: OMEPRAZOLE
     Dosage: 40 MG, 1 CAPSULE DAILY
     Dates: start: 20100719
  3. PROAIR HFA [Concomitant]
     Active Substance: ALBUTEROL SULFATE
     Dosage: 1 DF, 2X/DAY
     Dates: start: 20100309
  4. ZIPRASIDONE HCL [Concomitant]
     Active Substance: ZIPRASIDONE HYDROCHLORIDE
     Dosage: 60 MG, UNK
     Route: 048
     Dates: start: 20120319
  5. ALBUTEROL SULFATE. [Concomitant]
     Active Substance: ALBUTEROL SULFATE
     Dosage: 0.083%, AS NEEDED (INHALE 1 VIAL 0.083% EVERY 4 HOURS AS NEEDED)
     Dates: start: 20110201
  6. CLONAZEPAM. [Concomitant]
     Active Substance: CLONAZEPAM
     Dosage: 1 MG, UNK
     Route: 048
     Dates: start: 20110513
  7. VOLTAREN [Concomitant]
     Active Substance: DICLOFENAC SODIUM
     Dosage: 1 %, APPLY SPARINGLY TO AFFECTED AREAS FOUR TIMES DAILY AS NEEDED
     Route: 062
     Dates: start: 20140108
  8. METOPROLOL TARTRATE. [Concomitant]
     Active Substance: METOPROLOL TARTRATE
     Dosage: 25 MG, 1 TABLET 2X/DAY
     Route: 048
     Dates: start: 20110723
  9. AMPHETAMINE-DEXTROAMPHETAMINE [Concomitant]
     Active Substance: AMPHETAMINE SULFATE\DEXTROAMPHETAMINE
     Dosage: 10 MG, UNK
     Route: 048
     Dates: start: 20110923
  10. LYRICA [Suspect]
     Active Substance: PREGABALIN
     Indication: COMPLEX REGIONAL PAIN SYNDROME
     Dosage: 150 MG, 2X/DAY
     Dates: start: 20130515
  11. CYCLOBENZAPRINE HCL [Concomitant]
     Active Substance: CYCLOBENZAPRINE HYDROCHLORIDE
     Dosage: 10 MG, UNK
     Route: 048
     Dates: start: 20140806
  12. DALIRESP [Concomitant]
     Active Substance: ROFLUMILAST
     Dosage: 500 MCG, UNK
     Route: 048
     Dates: start: 20120203
  13. MELOXICAM. [Concomitant]
     Active Substance: MELOXICAM
     Dosage: 7.5 MG, 2X/DAY WITH FOOD
     Route: 048
     Dates: start: 20140404
  14. RESTORIL [Concomitant]
     Active Substance: TEMAZEPAM
     Dosage: 30 MG, UNK
     Route: 048
  15. ALPRAZOLAM. [Concomitant]
     Active Substance: ALPRAZOLAM
     Dosage: 1 MG, UNK
     Route: 048
     Dates: start: 20121113
  16. MECLIZINE HCL [Concomitant]
     Indication: DIZZINESS
     Dosage: 25 MG, 1 TABLET Q4-6 PM
     Route: 048
     Dates: start: 20150911
  17. ADULT ASPIRIN EC LOW STRENGTH [Concomitant]
     Dosage: 81 MG, 1 TABLET DAILY
     Route: 048
     Dates: start: 20090731
  18. NEURONTIN [Concomitant]
     Active Substance: GABAPENTIN
     Dosage: UNK, 2X/DAY
  19. BREO ELLIPTA [Concomitant]
     Active Substance: FLUTICASONE FUROATE\VILANTEROL TRIFENATATE
     Dosage: FLUTICASONE FUROATE 100MCG-VILANTEROL 25 MCG/ USE 1 INHALATION ONCE DAILY
     Dates: start: 20140724
  20. WESTCORT [Concomitant]
     Active Substance: HYDROCORTISONE VALERATE
     Dosage: 0.2 %, APPLY 2-3 TIMES DAILY
     Dates: start: 20110628
  21. METHOCARBAMOL. [Concomitant]
     Active Substance: METHOCARBAMOL
     Dosage: 500 MG, UNK
     Route: 048
     Dates: start: 20130121
  22. SIMVASTATIN. [Concomitant]
     Active Substance: SIMVASTATIN
     Dosage: 40 MG, 1 TABLET 1X/DAY
     Route: 048
     Dates: start: 20090731

REACTIONS (1)
  - Injury [Unknown]

NARRATIVE: CASE EVENT DATE: 2009
